FAERS Safety Report 8049299 (Version 2)
Quarter: 2013Q2

REPORT INFORMATION
  Report Type: Report from Study
  Country: MX (occurrence: MX)
  Receive Date: 20110722
  Receipt Date: 20130609
  Transmission Date: 20140414
  Serious: Yes (Other)
  Sender: FDA-Public Use
  Company Number: PHHY2011MX63627

PATIENT
  Age: 77 Year
  Sex: Female

DRUGS (3)
  1. TEGRETOL 400 LC [Suspect]
     Indication: CEREBRAL HAEMORRHAGE
     Dosage: 2 DF, QD
     Route: 048
     Dates: start: 20110323
  2. TEGRETOL 400 LC [Suspect]
     Indication: OFF LABEL USE
  3. RANISEN [Concomitant]
     Dosage: UNK UKN, UNK

REACTIONS (2)
  - Thrombosis [Recovering/Resolving]
  - Headache [Not Recovered/Not Resolved]
